FAERS Safety Report 21232251 (Version 1)
Quarter: 2022Q3

REPORT INFORMATION
  Report Type: Spontaneous
  Country: US (occurrence: None)
  Receive Date: 20220818
  Receipt Date: 20220818
  Transmission Date: 20221027
  Serious: Yes (Hospitalization)
  Sender: FDA-Public Use
  Company Number: None

PATIENT
  Age: 64 Year
  Sex: Male
  Weight: 60.75 kg

DRUGS (5)
  1. ALFUZOSIN HYDROCHLORIDE [Suspect]
     Active Substance: ALFUZOSIN HYDROCHLORIDE
     Indication: Brachytherapy
     Dosage: OTHER QUANTITY : 1 TABLET(S);?FREQUENCY : DAILY;?
     Route: 048
     Dates: start: 20220809
  2. VITAMIN D [Concomitant]
     Active Substance: VITAMIN D NOS
  3. VITAMINS [Concomitant]
     Active Substance: VITAMINS
  4. FISH OIL [Concomitant]
  5. ROSUVASTATIN [Concomitant]
     Active Substance: ROSUVASTATIN

REACTIONS (1)
  - Feeling hot [None]

NARRATIVE: CASE EVENT DATE: 20220810
